FAERS Safety Report 18129776 (Version 1)
Quarter: 2020Q3

REPORT INFORMATION
  Report Type: Spontaneous
  Country: US (occurrence: US)
  Receive Date: 20200810
  Receipt Date: 20200810
  Transmission Date: 20201103
  Serious: No
  Sender: FDA-Public Use
  Company Number: US-PERRIGO-20US000174

PATIENT
  Age: 60 Year
  Sex: Female
  Weight: 79.82 kg

DRUGS (12)
  1. GABAPENTIN. [Concomitant]
     Active Substance: GABAPENTIN
     Indication: ARTHRITIS
  2. LORATADINE. [Suspect]
     Active Substance: LORATADINE
     Indication: RHINORRHOEA
  3. CIMZIA [Concomitant]
     Active Substance: CERTOLIZUMAB PEGOL
     Indication: ARTHRITIS
     Dosage: UNK, EVERY 2 WEEKS
     Route: 059
  4. WELLBUTRIN [Concomitant]
     Active Substance: BUPROPION HYDROCHLORIDE
     Indication: DEPRESSION
     Dosage: UNK
     Route: 065
  5. HYDROCODONE [Concomitant]
     Active Substance: HYDROCODONE
     Indication: FIBROMYALGIA
     Dosage: UNK
     Route: 048
     Dates: start: 2010, end: 20191223
  6. MORPHINE [Concomitant]
     Active Substance: MORPHINE
     Indication: FIBROMYALGIA
     Dosage: UNK
     Route: 065
     Dates: start: 2017, end: 20191223
  7. GABAPENTIN. [Concomitant]
     Active Substance: GABAPENTIN
     Indication: FIBROMYALGIA
     Dosage: UNK
     Route: 065
  8. DIETARY SUPPLEMENT [Suspect]
     Active Substance: DIETARY SUPPLEMENT
     Indication: SUPPLEMENTATION THERAPY
     Dosage: UNKNOWN, QD
     Route: 048
     Dates: start: 201911, end: 201911
  9. LORATADINE. [Suspect]
     Active Substance: LORATADINE
     Indication: INCREASED UPPER AIRWAY SECRETION
     Dosage: 10 MG, QD
     Route: 048
     Dates: start: 2016
  10. MORPHINE [Concomitant]
     Active Substance: MORPHINE
     Indication: ARTHRITIS
  11. HYDROCODONE [Concomitant]
     Active Substance: HYDROCODONE
     Indication: ARTHRITIS
  12. CYCLOBENZAPRINE. [Concomitant]
     Active Substance: CYCLOBENZAPRINE
     Indication: MUSCLE RELAXANT THERAPY
     Dosage: UNK
     Route: 065

REACTIONS (1)
  - Drug screen positive [Recovered/Resolved]

NARRATIVE: CASE EVENT DATE: 20191121
